FAERS Safety Report 9001047 (Version 1)
Quarter: 2013Q1

REPORT INFORMATION
  Report Type: Spontaneous
  Country: US (occurrence: US)
  Receive Date: 20130107
  Receipt Date: 20130107
  Transmission Date: 20140127
  Serious: No
  Sender: FDA-Public Use
  Company Number: US-PFIZER INC-2012331152

PATIENT
  Age: 6 Decade
  Sex: Male

DRUGS (4)
  1. FLUOROURACIL [Suspect]
     Dosage: UNK
  2. IRINOTECAN HCL [Suspect]
     Dosage: UNK
     Route: 042
  3. CALCIUM FOLINATE [Suspect]
     Dosage: UNK
     Route: 042
  4. AFLIBERCEPT [Suspect]
     Dosage: UNK
     Route: 042

REACTIONS (1)
  - Diarrhoea [Unknown]
